FAERS Safety Report 20079744 (Version 2)
Quarter: 2022Q1

REPORT INFORMATION
  Report Type: Report from Study
  Country: US (occurrence: None)
  Receive Date: 20211117
  Receipt Date: 20220127
  Transmission Date: 20220423
  Serious: Yes (Other)
  Sender: FDA-Public Use
  Company Number: US-ROCHE-2794856

PATIENT
  Age: 83 Year
  Sex: Female
  Weight: 80.7 kg

DRUGS (33)
  1. RANIBIZUMAB [Suspect]
     Active Substance: RANIBIZUMAB
     Indication: Neovascular age-related macular degeneration
     Dosage: 100 MG/ML, ONCE IN 24 WEEKS, DOSE OF LAST STUDY EYE RANIBIZUMAB ADMINISTERED PRIOR TO AE/SAE ONSET:
     Route: 050
     Dates: start: 20200928
  2. RANIBIZUMAB [Suspect]
     Active Substance: RANIBIZUMAB
  3. RANIBIZUMAB [Suspect]
     Active Substance: RANIBIZUMAB
  4. RANIBIZUMAB [Suspect]
     Active Substance: RANIBIZUMAB
  5. RANIBIZUMAB [Suspect]
     Active Substance: RANIBIZUMAB
  6. RANIBIZUMAB [Suspect]
     Active Substance: RANIBIZUMAB
  7. RANIBIZUMAB [Concomitant]
     Active Substance: RANIBIZUMAB
     Indication: Neovascular age-related macular degeneration
     Dosage: FELLOW EYE TREATMENT, 10 MG/ML, DOSE OF LAST FELLOW EYE RANIBIZUMAB ADMINISTERED PRIOR TO AE/SAE ONS
     Route: 050
     Dates: start: 20210121
  8. CALCIUM [Concomitant]
     Active Substance: CALCIUM
     Dosage: GENERAL HEALTH
     Route: 048
     Dates: start: 1979, end: 201909
  9. VITAMIN D3 [Concomitant]
     Active Substance: CHOLECALCIFEROL
     Route: 048
     Dates: start: 1979, end: 201909
  10. LYSINE [Concomitant]
     Active Substance: LYSINE
     Indication: Prophylaxis
     Dosage: HSV1 PROPHYLAXIS
     Route: 048
     Dates: start: 2000
  11. POTASSIUM CHLORIDE [Concomitant]
     Active Substance: POTASSIUM CHLORIDE
     Indication: Muscle spasms
     Dosage: 1 TABLET
     Route: 048
     Dates: start: 2018
  12. VITAMIN C [Concomitant]
     Active Substance: ASCORBIC ACID
     Route: 048
     Dates: start: 1979, end: 202004
  13. GLUCOSAMINE CHONDROITIN COMPLEX ADVANV (UNK INGREDIENTS) [Concomitant]
     Indication: Osteoarthritis
     Route: 048
     Dates: start: 2018
  14. MAGNESIUM [Concomitant]
     Active Substance: MAGNESIUM
     Indication: Prophylaxis
     Dosage: 1 TABLET
     Route: 048
     Dates: start: 201904, end: 201909
  15. MELOXICAM [Concomitant]
     Active Substance: MELOXICAM
     Indication: Muscle spasms
     Route: 048
     Dates: start: 20191016
  16. CYCLOBENZAPRINE [Concomitant]
     Active Substance: CYCLOBENZAPRINE
     Indication: Muscle spasms
     Dates: start: 20191016
  17. HERBALS\TURMERIC [Concomitant]
     Active Substance: HERBALS\TURMERIC
     Route: 048
     Dates: start: 20200201
  18. REPATHA [Concomitant]
     Active Substance: EVOLOCUMAB
     Indication: Hypercholesterolaemia
     Dosage: 140 OTHER
     Route: 058
     Dates: start: 20200130
  19. GABAPENTIN [Concomitant]
     Active Substance: GABAPENTIN
     Indication: Sciatica
     Route: 048
     Dates: start: 20200827
  20. IBUPROFEN [Concomitant]
     Active Substance: IBUPROFEN
     Indication: Sciatica
     Route: 048
     Dates: start: 20200827
  21. LIDOCAINE [Concomitant]
     Active Substance: LIDOCAINE
     Indication: Sciatica
     Route: 048
     Dates: start: 20200827
  22. NAPROXEN [Concomitant]
     Active Substance: NAPROXEN
     Indication: Ankle fracture
     Route: 048
     Dates: start: 20200915
  23. DOXYCYCLINE HYCLATE [Concomitant]
     Active Substance: DOXYCYCLINE HYCLATE
     Indication: Infection prophylaxis
     Route: 048
     Dates: start: 20201120
  24. MUPIROCIN [Concomitant]
     Active Substance: MUPIROCIN
     Dosage: SCARRING PROPHYLAXIS
     Route: 061
     Dates: start: 20201120, end: 202102
  25. ASPIRIN [Concomitant]
     Active Substance: ASPIRIN
     Indication: Cardiovascular event prophylaxis
     Route: 048
     Dates: start: 2004, end: 2019
  26. ASPIRIN [Concomitant]
     Active Substance: ASPIRIN
     Route: 048
     Dates: start: 202012, end: 20210317
  27. ASPIRIN [Concomitant]
     Active Substance: ASPIRIN
     Route: 048
     Dates: start: 20210326
  28. PNEUMOCOCCAL VACCINE POLYVALENT [Concomitant]
     Active Substance: PNEUMOCOCCAL VACCINE POLYVALENT
     Indication: Infection prophylaxis
     Route: 030
     Dates: start: 20210331, end: 20210331
  29. COVID-19 VACCINE [Concomitant]
     Dates: start: 20210224, end: 20210224
  30. TOBRAMYCIN AND DEXAMETHASONE [Concomitant]
     Active Substance: DEXAMETHASONE\TOBRAMYCIN
     Indication: Prophylaxis
     Route: 061
     Dates: start: 20210318, end: 20210401
  31. CRANBERRY [Concomitant]
     Active Substance: CRANBERRY
     Route: 048
     Dates: start: 202103
  32. POTASSIUM [Concomitant]
     Active Substance: POTASSIUM
     Route: 048
     Dates: start: 201910
  33. SYSTANE (HYPROMELLOSE 2910 (4000 MPA.S)) [Concomitant]
     Active Substance: HYPROMELLOSE 2910 (4000 MPA.S)
     Indication: Dry eye
     Dates: start: 20191206

REACTIONS (1)
  - Conjunctival erosion [Recovered/Resolved]

NARRATIVE: CASE EVENT DATE: 20210318
